FAERS Safety Report 13118437 (Version 5)
Quarter: 2017Q3

REPORT INFORMATION
  Report Type: Spontaneous
  Country: CA (occurrence: CA)
  Receive Date: 20170116
  Receipt Date: 20170922
  Transmission Date: 20171127
  Serious: Yes (Hospitalization, Other)
  Sender: FDA-Public Use
  Company Number: CA-ELI_LILLY_AND_COMPANY-CA201701004318

PATIENT
  Age: 60 Year
  Sex: Male
  Weight: 86 kg

DRUGS (7)
  1. TALTZ [Suspect]
     Active Substance: IXEKIZUMAB
     Indication: PSORIASIS
     Dosage: 160 MG, SINGLE
     Route: 058
     Dates: start: 20161215, end: 20161229
  2. STELARA [Suspect]
     Active Substance: USTEKINUMAB
     Indication: PSORIASIS
     Dosage: UNK
     Route: 065
     Dates: end: 201611
  3. CRESTOR [Concomitant]
     Active Substance: ROSUVASTATIN CALCIUM
     Dosage: 20 MG, QD
     Route: 048
  4. ASPIRIN                            /00002701/ [Concomitant]
     Active Substance: ASPIRIN
     Dosage: 81 MG, QD
  5. RAMIPRIL. [Concomitant]
     Active Substance: RAMIPRIL
     Dosage: 5 MG, QD
     Route: 048
  6. TALTZ [Suspect]
     Active Substance: IXEKIZUMAB
     Dosage: 80 DF, UNKNOWN
     Route: 058
     Dates: start: 20161229, end: 201701
  7. TALTZ [Suspect]
     Active Substance: IXEKIZUMAB
     Dosage: 80 DF, UNKNOWN
     Route: 058
     Dates: start: 20170620

REACTIONS (9)
  - Infection [Unknown]
  - Acute kidney injury [Unknown]
  - Inappropriate schedule of drug administration [Unknown]
  - Gallbladder polyp [Unknown]
  - Weight decreased [Unknown]
  - Injection site swelling [Recovered/Resolved]
  - Staphylococcal infection [Unknown]
  - Pemphigoid [Recovering/Resolving]
  - Injection site pain [Recovered/Resolved]

NARRATIVE: CASE EVENT DATE: 20170301
